FAERS Safety Report 9498418 (Version 1)
Quarter: 2013Q3

REPORT INFORMATION
  Report Type: Spontaneous
  Country: US (occurrence: US)
  Receive Date: 20130904
  Receipt Date: 20130904
  Transmission Date: 20140515
  Serious: Yes (Other)
  Sender: FDA-Public Use
  Company Number: US-GLAXOSMITHKLINE-A1039605A

PATIENT
  Sex: Female

DRUGS (4)
  1. LAMICTAL XR [Suspect]
     Indication: CONVULSION
     Dosage: 600MG PER DAY
     Route: 065
  2. KEPPRA XR [Suspect]
     Indication: CONVULSION
     Dosage: 600MG PER DAY
     Route: 065
  3. VIMPAT [Suspect]
     Indication: CONVULSION
     Dosage: 50MG TWICE PER DAY
  4. UNKNOWN MEDICATION [Suspect]
     Indication: CONVULSION

REACTIONS (4)
  - Convulsion [Unknown]
  - Dizziness [Unknown]
  - Vertigo [Unknown]
  - Malaise [Unknown]
